FAERS Safety Report 6751763-1 (Version None)
Quarter: 2010Q2

REPORT INFORMATION
  Report Type: 
  Country: None (occurrence: None)
  Receive Date: 20100602
  Receipt Date: 20100520
  Transmission Date: 20101027
  Serious: Yes (Other)
  Sender: FDA-Public Use
  Company Number: PHHY2010LB33793

PATIENT
  Age: 38 Year
  Sex: Male

DRUGS (1)
  1. IMATINIB [Suspect]
     Indication: CHRONIC MYELOID LEUKAEMIA
     Dosage: 400 MG/DAY

REACTIONS (5)
  - ASCITES [None]
  - DRUG INTOLERANCE [None]
  - HEPATOSPLENOMEGALY [None]
  - PERICARDIAL EFFUSION [None]
  - PLEURAL EFFUSION [None]
